FAERS Safety Report 11199358 (Version 1)
Quarter: 2015Q2

REPORT INFORMATION
  Report Type: Spontaneous
  Country: PT (occurrence: None)
  Receive Date: 20150616
  Receipt Date: 20150616
  Transmission Date: 20150821
  Serious: Yes (Other)
  Sender: FDA-Public Use
  Company Number: PT-H14001-15-00909

PATIENT
  Age: 24 Year
  Sex: Female

DRUGS (1)
  1. CEFAZOLINA HIKMA [Suspect]
     Active Substance: CEFAZOLIN SODIUM
     Indication: PRODUCT USED FOR UNKNOWN INDICATION
     Route: 041
     Dates: start: 20150602, end: 20150602

REACTIONS (4)
  - Angioedema [None]
  - Hypersensitivity [None]
  - Urticaria [None]
  - Blister [None]

NARRATIVE: CASE EVENT DATE: 20150602
